FAERS Safety Report 11746060 (Version 4)
Quarter: 2016Q2

REPORT INFORMATION
  Report Type: Report from Study
  Country: US (occurrence: US)
  Receive Date: 20151117
  Receipt Date: 20160503
  Transmission Date: 20160815
  Serious: Yes (Death, Other)
  Sender: FDA-Public Use
  Company Number: PHEH2015US023875

PATIENT
  Sex: Male

DRUGS (1)
  1. ENTRESTO [Suspect]
     Active Substance: SACUBITRIL\VALSARTAN
     Indication: CARDIAC FAILURE CHRONIC
     Dosage: 50 MG, BID
     Route: 065
     Dates: start: 20150901

REACTIONS (6)
  - Death [Fatal]
  - Fatigue [Unknown]
  - Therapeutic response unexpected [Unknown]
  - Cough [Unknown]
  - Skin abrasion [Recovering/Resolving]
  - Renal failure [Fatal]
